FAERS Safety Report 16598334 (Version 4)
Quarter: 2020Q1

REPORT INFORMATION
  Report Type: Report from Study
  Country: US (occurrence: US)
  Receive Date: 20190719
  Receipt Date: 20200113
  Transmission Date: 20200409
  Serious: Yes (Other)
  Sender: FDA-Public Use
  Company Number: PHEH2019US029929

PATIENT
  Age: 57 Year
  Sex: Female

DRUGS (2)
  1. COSENTYX [Suspect]
     Active Substance: SECUKINUMAB
     Indication: PSORIASIS
     Dosage: 300 MG (INJECT 300 MG (2 PENS) SUBCUTANEOUSLY AT WEEK 4, THEN 300 MG (2 PENS) EVERY 4 WEEKS THEREAF)
     Route: 058
     Dates: start: 20190213
  2. COSENTYX [Suspect]
     Active Substance: SECUKINUMAB
     Indication: PSORIATIC ARTHROPATHY
     Dosage: 300 MG, QMO
     Route: 058

REACTIONS (5)
  - Blood cholesterol increased [Unknown]
  - Rheumatoid arthritis [Unknown]
  - Arthritis [Unknown]
  - Arthralgia [Unknown]
  - Rash [Unknown]

NARRATIVE: CASE EVENT DATE: 20190813
